FAERS Safety Report 16632266 (Version 1)
Quarter: 2019Q3

REPORT INFORMATION
  Report Type: Spontaneous
  Country: US (occurrence: US)
  Receive Date: 20190725
  Receipt Date: 20190725
  Transmission Date: 20191004
  Serious: Yes (Other)
  Sender: FDA-Public Use
  Company Number: US-VELOXIS PHARMACEUTICALS, INC.-2019VELUS1636

PATIENT
  Age: 38 Year
  Sex: Female

DRUGS (4)
  1. ANTITHYMOCYTE IMMUNOGLOBULIN [Concomitant]
     Active Substance: THYMOCYTE IMMUNE GLOBULIN NOS
     Indication: IMMUNE TOLERANCE INDUCTION
     Dosage: 6 MG/KG, UNK
  2. PREDNISONE. [Concomitant]
     Active Substance: PREDNISONE
     Indication: RENAL AND PANCREAS TRANSPLANT
     Dosage: UNK
     Route: 065
  3. ENVARSUS XR [Suspect]
     Active Substance: TACROLIMUS
     Indication: RENAL AND PANCREAS TRANSPLANT
     Dosage: UNK
     Route: 065
  4. MYCOPHENOLATE [Concomitant]
     Active Substance: MYCOPHENOLIC ACID
     Indication: RENAL AND PANCREAS TRANSPLANT
     Dosage: UNK
     Route: 065

REACTIONS (3)
  - Diabetes mellitus [Unknown]
  - Intentional product use issue [Unknown]
  - Transplant failure [Unknown]
